FAERS Safety Report 5188848-X (Version None)
Quarter: 2006Q4

REPORT INFORMATION
  Report Type: 
  Country: None (occurrence: None)
  Receive Date: 20061221
  Receipt Date: 20061218
  Transmission Date: 20070319
  Serious: Yes (Other)
  Sender: FDA-Public Use
  Company Number: US-ROXANE LABORATORIES, INC-2006-BP-14702RO

PATIENT
  Sex: Male

DRUGS (1)
  1. LITHIUM CARBONATE [Suspect]
     Dosage: 300 MG X 1 DOSE (WRONG DRUG)
     Route: 048
     Dates: start: 20061217, end: 20061217

REACTIONS (1)
  - DRUG DISPENSING ERROR [None]
